FAERS Safety Report 17033950 (Version 2)
Quarter: 2020Q2

REPORT INFORMATION
  Report Type: Report from Study
  Country: US (occurrence: US)
  Receive Date: 20191114
  Receipt Date: 20200515
  Transmission Date: 20200713
  Serious: Yes (Hospitalization)
  Sender: FDA-Public Use
  Company Number: US-ACTELION-A-NJ2019-198116

PATIENT
  Age: 12 Year
  Sex: Male

DRUGS (7)
  1. BUDESONIDE. [Concomitant]
     Active Substance: BUDESONIDE
  2. SILDENAFIL. [Concomitant]
     Active Substance: SILDENAFIL
  3. SPIRONOLACTONE. [Concomitant]
     Active Substance: SPIRONOLACTONE
  4. ENALAPRIL [Concomitant]
     Active Substance: ENALAPRIL
  5. FUROSEMIDE. [Concomitant]
     Active Substance: FUROSEMIDE
  6. OPSUMIT [Suspect]
     Active Substance: MACITENTAN
     Indication: PULMONARY ARTERIAL HYPERTENSION
     Dosage: 10 MG, QD
     Route: 048
     Dates: start: 20170421
  7. ASPIRIN. [Concomitant]
     Active Substance: ASPIRIN

REACTIONS (9)
  - Constipation [Recovered/Resolved]
  - Fatigue [Unknown]
  - Abdominal pain [Recovered/Resolved]
  - Collateral circulation [Unknown]
  - Therapeutic embolisation [Unknown]
  - Muscle spasms [Unknown]
  - Pain in extremity [Unknown]
  - Toe walking [Unknown]
  - Catheterisation cardiac [Unknown]

NARRATIVE: CASE EVENT DATE: 20191008
